FAERS Safety Report 9646597 (Version 1)
Quarter: 2013Q4

REPORT INFORMATION
  Report Type: Spontaneous
  Country: US (occurrence: US)
  Receive Date: 20131026
  Receipt Date: 20131026
  Transmission Date: 20140711
  Serious: Yes (Hospitalization)
  Sender: FDA-Public Use
  Company Number: US-ROCHE-1293463

PATIENT
  Age: 78 Year
  Sex: Male

DRUGS (7)
  1. XOLAIR [Suspect]
     Indication: ASTHMA
     Route: 058
  2. ADVAIR [Concomitant]
  3. SINGULAIR [Concomitant]
  4. HCTZ [Concomitant]
  5. VERAPAMIL [Concomitant]
  6. NASONEX [Concomitant]
  7. SPIRIVA [Concomitant]

REACTIONS (4)
  - Abdominal pain [Unknown]
  - Pancreatitis [Unknown]
  - Amylase increased [Unknown]
  - Lipase increased [Unknown]
